FAERS Safety Report 13940271 (Version 6)
Quarter: 2019Q4

REPORT INFORMATION
  Report Type: Report from Study
  Country: US (occurrence: US)
  Receive Date: 20170906
  Receipt Date: 20191107
  Transmission Date: 20200122
  Serious: Yes (Hospitalization)
  Sender: FDA-Public Use
  Company Number: US-EISAI MEDICAL RESEARCH-EC-2017-030861

PATIENT
  Age: 72 Year
  Sex: Female
  Weight: 75.8 kg

DRUGS (30)
  1. IMODIUM [Concomitant]
     Active Substance: LOPERAMIDE HYDROCHLORIDE
  2. MS CONTIN [Concomitant]
     Active Substance: MORPHINE SULFATE
  3. ZOLPIDEM [Concomitant]
     Active Substance: ZOLPIDEM TARTRATE
  4. JANUMET [Concomitant]
     Active Substance: METFORMIN HYDROCHLORIDE\SITAGLIPTIN PHOSPHATE
  5. PROBIOTIC [Concomitant]
     Active Substance: PROBIOTICS NOS
  6. TOPIRAMATE. [Concomitant]
     Active Substance: TOPIRAMATE
  7. LORAZEPAM. [Concomitant]
     Active Substance: LORAZEPAM
  8. PREDNISONE. [Concomitant]
     Active Substance: PREDNISONE
  9. HYDROMORPHONE [Concomitant]
     Active Substance: HYDROMORPHONE
  10. PEMBROLIZUMAB. [Suspect]
     Active Substance: PEMBROLIZUMAB
     Indication: ENDOMETRIAL CANCER
     Route: 041
     Dates: start: 20170724, end: 20170815
  11. ASPIRIN. [Concomitant]
     Active Substance: ASPIRIN
  12. CITALOPRAM [Concomitant]
     Active Substance: CITALOPRAM HYDROBROMIDE
  13. VITAMIN D3 [Concomitant]
     Active Substance: CHOLECALCIFEROL
  14. MORPHINE [Concomitant]
     Active Substance: MORPHINE
  15. LENVATINIB [Suspect]
     Active Substance: LENVATINIB
     Route: 048
     Dates: start: 201708, end: 201708
  16. MAGNESIUM AMINO ACIDS CHELATE [Concomitant]
  17. ATORVASTATIN [Concomitant]
     Active Substance: ATORVASTATIN
  18. TRAVOPROST. [Concomitant]
     Active Substance: TRAVOPROST
  19. LENVATINIB [Suspect]
     Active Substance: LENVATINIB
     Route: 048
     Dates: start: 20170921, end: 20171013
  20. LOSARTAN. [Concomitant]
     Active Substance: LOSARTAN
  21. CAPTOPRIL. [Concomitant]
     Active Substance: CAPTOPRIL
  22. PANTOPRAZOLE [Concomitant]
     Active Substance: PANTOPRAZOLE
  23. AMLODIPINE [Concomitant]
     Active Substance: AMLODIPINE BESYLATE
  24. LENVATINIB [Suspect]
     Active Substance: LENVATINIB
     Indication: ENDOMETRIAL CANCER
     Route: 048
     Dates: start: 20170724, end: 201708
  25. ONDANSETRON [Concomitant]
     Active Substance: ONDANSETRON
  26. GABAPENTIN. [Concomitant]
     Active Substance: GABAPENTIN
  27. LEVOTHYROXINE. [Concomitant]
     Active Substance: LEVOTHYROXINE
  28. DOCUSATE SODIUM. [Concomitant]
     Active Substance: DOCUSATE SODIUM
  29. PEMBROLIZUMAB. [Suspect]
     Active Substance: PEMBROLIZUMAB
     Route: 041
     Dates: start: 20170921, end: 20170921
  30. ALPHAGAN P [Concomitant]
     Active Substance: BRIMONIDINE TARTRATE

REACTIONS (3)
  - Peripheral sensory neuropathy [Not Recovered/Not Resolved]
  - Autoimmune nephritis [Recovered/Resolved]
  - Confusional state [Recovered/Resolved]

NARRATIVE: CASE EVENT DATE: 20170822
